FAERS Safety Report 18445334 (Version 3)
Quarter: 2021Q2

REPORT INFORMATION
  Report Type: Report from Study
  Country: JP (occurrence: JP)
  Receive Date: 20201030
  Receipt Date: 20210507
  Transmission Date: 20210717
  Serious: Yes (Disabling)
  Sender: FDA-Public Use
  Company Number: JP-TAKEDA-2020TUS046165

PATIENT
  Age: 65 Year
  Sex: Female
  Weight: 36.3 kg

DRUGS (30)
  1. DARZALEX [Suspect]
     Active Substance: DARATUMUMAB
     Dosage: 16 MILLIGRAM/KILOGRAM, QD
     Route: 041
     Dates: start: 20180214, end: 20180214
  2. DEXAMETHASONE. [Concomitant]
     Active Substance: DEXAMETHASONE
     Dosage: 19.8 MILLIGRAM, QD
     Route: 065
     Dates: start: 20180105, end: 20180105
  3. DARZALEX [Suspect]
     Active Substance: DARATUMUMAB
     Dosage: 16 MILLIGRAM/KILOGRAM, QD
     Route: 041
     Dates: start: 20180105, end: 20180105
  4. DEXAMETHASONE. [Concomitant]
     Active Substance: DEXAMETHASONE
     Dosage: 19.8 MILLIGRAM, QD
     Route: 065
     Dates: start: 20180125, end: 20180125
  5. DEXAMETHASONE. [Concomitant]
     Active Substance: DEXAMETHASONE
     Dosage: 19.8 MILLIGRAM, QD
     Route: 065
     Dates: start: 20180320, end: 20180320
  6. PLATELETS [Concomitant]
     Active Substance: HUMAN PLATELET, ALLOGENIC
     Dosage: 10 INTERNATIONAL UNIT, QD
     Route: 065
     Dates: start: 20180131, end: 20180131
  7. PLATELETS [Concomitant]
     Active Substance: HUMAN PLATELET, ALLOGENIC
     Dosage: 10 INTERNATIONAL UNIT, QD
     Route: 065
     Dates: start: 20180203, end: 20180203
  8. PLATELETS [Concomitant]
     Active Substance: HUMAN PLATELET, ALLOGENIC
     Dosage: 10 INTERNATIONAL UNIT, QD
     Route: 065
     Dates: start: 20180217, end: 20180217
  9. BORTEZOMIB. [Suspect]
     Active Substance: BORTEZOMIB
     Indication: PLASMA CELL MYELOMA
     Dosage: 1.3 MILLIGRAM/SQ. METER, QD
     Route: 065
     Dates: start: 20171227, end: 20171227
  10. DARZALEX [Suspect]
     Active Substance: DARATUMUMAB
     Indication: PLASMA CELL MYELOMA
     Dosage: 16 MILLIGRAM/KILOGRAM, QD
     Route: 041
     Dates: start: 20171227, end: 20171227
  11. DARZALEX [Suspect]
     Active Substance: DARATUMUMAB
     Dosage: 16 MILLIGRAM/KILOGRAM, QD
     Route: 041
     Dates: start: 20180313, end: 20180313
  12. DEXAMETHASONE. [Concomitant]
     Active Substance: DEXAMETHASONE
     Dosage: 19.8 MILLIGRAM, QD
     Route: 065
     Dates: start: 20180220, end: 20180220
  13. DEXAMETHASONE. [Concomitant]
     Active Substance: DEXAMETHASONE
     Dosage: 19.8 MILLIGRAM, QD
     Route: 065
     Dates: start: 20180226, end: 20180227
  14. PLATELETS [Concomitant]
     Active Substance: HUMAN PLATELET, ALLOGENIC
     Dosage: 10 INTERNATIONAL UNIT, QD
     Route: 065
     Dates: start: 20180207, end: 20180207
  15. DEXAMETHASONE. [Concomitant]
     Active Substance: DEXAMETHASONE
     Indication: PLASMA CELL MYELOMA
     Dosage: 19.8 MILLIGRAM, QD
     Route: 065
     Dates: start: 20171227, end: 20171227
  16. DEXAMETHASONE. [Concomitant]
     Active Substance: DEXAMETHASONE
     Dosage: 19.8 MILLIGRAM, QD
     Route: 065
     Dates: start: 20180209, end: 20180209
  17. DEXAMETHASONE. [Concomitant]
     Active Substance: DEXAMETHASONE
     Dosage: 19.8 MILLIGRAM, QD
     Route: 065
     Dates: start: 20180312, end: 20180313
  18. PLATELETS [Concomitant]
     Active Substance: HUMAN PLATELET, ALLOGENIC
     Indication: PLATELET COUNT DECREASED
     Dosage: 10 INTERNATIONAL UNIT, QD
     Route: 065
     Dates: start: 20180117, end: 20180117
  19. PLATELETS [Concomitant]
     Active Substance: HUMAN PLATELET, ALLOGENIC
     Dosage: 10 INTERNATIONAL UNIT, QD
     Route: 065
     Dates: start: 20180320, end: 20180320
  20. DEXAMETHASONE. [Concomitant]
     Active Substance: DEXAMETHASONE
     Dosage: 19.8 MILLIGRAM, QD
     Route: 065
     Dates: start: 20180119, end: 20180119
  21. DEXAMETHASONE. [Concomitant]
     Active Substance: DEXAMETHASONE
     Dosage: 19.8 MILLIGRAM, QD
     Route: 065
     Dates: start: 20180202, end: 20180202
  22. DEXAMETHASONE. [Concomitant]
     Active Substance: DEXAMETHASONE
     Dosage: 19.8 MILLIGRAM, QD
     Route: 065
     Dates: start: 20180205, end: 20180205
  23. DEXAMETHASONE. [Concomitant]
     Active Substance: DEXAMETHASONE
     Dosage: 19.8 MILLIGRAM, QD
     Route: 065
     Dates: start: 20180213, end: 20180214
  24. SOLU?CORTEF [Concomitant]
     Active Substance: HYDROCORTISONE SODIUM SUCCINATE
     Indication: PYREXIA
     Dosage: 100 MILLIGRAM, QD
     Route: 065
     Dates: start: 20171227, end: 20171227
  25. PLATELETS [Concomitant]
     Active Substance: HUMAN PLATELET, ALLOGENIC
     Dosage: 10 INTERNATIONAL UNIT, QD
     Route: 065
     Dates: start: 20180124, end: 20180124
  26. PLATELETS [Concomitant]
     Active Substance: HUMAN PLATELET, ALLOGENIC
     Dosage: 10 INTERNATIONAL UNIT, QD
     Route: 065
     Dates: start: 20180213, end: 20180213
  27. DARZALEX [Suspect]
     Active Substance: DARATUMUMAB
     Dosage: 16 MILLIGRAM/KILOGRAM, QD
     Route: 041
     Dates: start: 20180227, end: 20180227
  28. DEXAMETHASONE. [Concomitant]
     Active Substance: DEXAMETHASONE
     Dosage: 19.8 MILLIGRAM, QD
     Route: 065
     Dates: start: 20180306, end: 20180306
  29. PLATELETS [Concomitant]
     Active Substance: HUMAN PLATELET, ALLOGENIC
     Dosage: 10 INTERNATIONAL UNIT, QD
     Route: 065
     Dates: start: 20180122, end: 20180122
  30. PLATELETS [Concomitant]
     Active Substance: HUMAN PLATELET, ALLOGENIC
     Dosage: 10 INTERNATIONAL UNIT, QD
     Route: 065
     Dates: start: 20180126, end: 20180126

REACTIONS (3)
  - Platelet count decreased [Not Recovered/Not Resolved]
  - Infusion related reaction [Recovered/Resolved]
  - Pyrexia [Recovered/Resolved]

NARRATIVE: CASE EVENT DATE: 20171227
